FAERS Safety Report 8542315-1 (Version None)
Quarter: 2012Q3

REPORT INFORMATION
  Report Type: 
  Country: None (occurrence: None)
  Receive Date: 20120726
  Receipt Date: 20120206
  Transmission Date: 20120928
  Serious: No
  Sender: FDA-Public Use
  Company Number: US-ASTRAZENECA-2011SE59672

PATIENT
  Age: 51 Year
  Sex: Female
  Weight: 72.6 kg

DRUGS (9)
  1. SEROQUEL [Suspect]
     Route: 048
  2. SEROQUEL [Suspect]
     Indication: SLEEP DISORDER
     Route: 048
     Dates: start: 20081001
  3. PRILOSEC [Concomitant]
     Route: 048
  4. SEROQUEL [Suspect]
     Indication: ANXIETY
     Route: 048
     Dates: start: 20081001
  5. CLONAPEN [Concomitant]
  6. SEROQUEL [Suspect]
     Route: 048
  7. SEROQUEL [Suspect]
     Indication: DEPRESSION
     Route: 048
     Dates: start: 20081001
  8. SEROQUEL [Suspect]
     Route: 048
  9. MEDICATION FOR CHOLESTEROL [Concomitant]

REACTIONS (2)
  - NASOPHARYNGITIS [None]
  - DRUG PRESCRIBING ERROR [None]
